FAERS Safety Report 8776269 (Version 1)
Quarter: 2012Q4

REPORT INFORMATION
  Report Type: 
  Country: US (occurrence: US)
  Receive Date: 20120910
  Receipt Date: 20120910
  Transmission Date: 20130627
  Serious: No
  Sender: FDA-Public Use
  Company Number: US-009507513-1208USA010961

PATIENT
  Sex: Female

DRUGS (1)
  1. GYNE LOTRIMIN 3 DAY CREAM [Suspect]
     Indication: PRURITUS
     Dosage: UNK
     Route: 067
     Dates: end: 20120808

REACTIONS (1)
  - Drug ineffective [Unknown]
